FAERS Safety Report 5600874-2 (Version None)
Quarter: 2007Q4

REPORT INFORMATION
  Report Type: 
  Country: None (occurrence: None)
  Receive Date: 20071228
  Receipt Date: 20070831
  Transmission Date: 20080405
  Serious: Yes (Hospitalization)
  Sender: FDA-Public Use
  Company Number: 20070281

PATIENT
  Age: 56 Year
  Sex: Female

DRUGS (1)
  1. VENOFER [Suspect]
     Indication: IRON DEFICIENCY
     Dosage: 500 MG EVERY 14 DAYS INTRAVENOUS
     Route: 042
     Dates: start: 20070727, end: 20070727

REACTIONS (1)
  - ANAPHYLACTOID REACTION [None]
